FAERS Safety Report 15516573 (Version 1)
Quarter: 2018Q4

REPORT INFORMATION
  Report Type: Spontaneous
  Country: JP (occurrence: JP)
  Receive Date: 20181017
  Receipt Date: 20181017
  Transmission Date: 20190205
  Serious: Yes (Other)
  Sender: FDA-Public Use
  Company Number: JP-ALKEM LABORATORIES LIMITED-JP-ALKEM-2018-06584

PATIENT
  Age: 60 Year
  Weight: 67 kg

DRUGS (1)
  1. LINEZOLID. [Suspect]
     Active Substance: LINEZOLID
     Indication: PNEUMONIA
     Dosage: 600 MG, BID, INTRAVENOUS INFUSION OVER 60 TO 120 MIN EVERY 12 H
     Route: 042

REACTIONS (1)
  - Thrombocytopenia [Unknown]
